FAERS Safety Report 17539365 (Version 1)
Quarter: 2020Q1

REPORT INFORMATION
  Report Type: Spontaneous
  Country: US (occurrence: US)
  Receive Date: 20200313
  Receipt Date: 20200313
  Transmission Date: 20200409
  Serious: Yes (Hospitalization)
  Sender: FDA-Public Use
  Company Number: US-PFIZER INC-2020109031

PATIENT

DRUGS (1)
  1. NEURONTIN [Suspect]
     Active Substance: GABAPENTIN
     Indication: JOINT INJURY
     Dosage: UNK

REACTIONS (4)
  - Product use in unapproved indication [Unknown]
  - Fall [Unknown]
  - Off label use [Unknown]
  - Lower limb fracture [Unknown]
